FAERS Safety Report 20746477 (Version 1)
Quarter: 2022Q2

REPORT INFORMATION
  Report Type: Spontaneous
  Country: US (occurrence: US)
  Receive Date: 20220425
  Receipt Date: 20220425
  Transmission Date: 20220721
  Serious: No
  Sender: FDA-Public Use
  Company Number: US-PFIZER INC-202101850381

PATIENT
  Sex: Female

DRUGS (1)
  1. VANCOMYCIN HYDROCHLORIDE [Suspect]
     Active Substance: VANCOMYCIN HYDROCHLORIDE
     Dosage: UNK
     Dates: start: 20211217

REACTIONS (5)
  - Micturition urgency [Unknown]
  - Dyspnoea [Unknown]
  - Speech disorder [Unknown]
  - Cardiac disorder [Unknown]
  - Vancomycin infusion reaction [Unknown]

NARRATIVE: CASE EVENT DATE: 20211201
